FAERS Safety Report 20728553 (Version 1)
Quarter: 2022Q2

REPORT INFORMATION
  Report Type: Spontaneous
  Country: US (occurrence: US)
  Receive Date: 20220420
  Receipt Date: 20220420
  Transmission Date: 20220720
  Serious: No
  Sender: FDA-Public Use
  Company Number: US-APOTEX-2022AP003861

PATIENT
  Sex: Male

DRUGS (1)
  1. ATORVASTATIN [Suspect]
     Active Substance: ATORVASTATIN
     Indication: Blood cholesterol abnormal
     Dosage: 1 DOSAGE FORM, QD
     Route: 065

REACTIONS (5)
  - Product dose omission in error [Unknown]
  - Inappropriate schedule of product administration [Unknown]
  - Product shape issue [Unknown]
  - Product colour issue [Unknown]
  - Product odour abnormal [Unknown]
